FAERS Safety Report 13332940 (Version 1)
Quarter: 2017Q1

REPORT INFORMATION
  Report Type: Spontaneous
  Country: US (occurrence: US)
  Receive Date: 20170314
  Receipt Date: 20170314
  Transmission Date: 20170428
  Serious: No
  Sender: FDA-Public Use
  Company Number: US-PFIZER INC-2017110459

PATIENT
  Age: 6 Year
  Sex: Male
  Weight: 16 kg

DRUGS (1)
  1. GENOTROPIN [Suspect]
     Active Substance: SOMATROPIN
     Indication: GROWTH RETARDATION
     Dosage: 0.8 MG, 1X/DAY (EVERY NIGHT BEFORE BED)
     Dates: start: 20170301

REACTIONS (3)
  - Irritability [Recovering/Resolving]
  - Fatigue [Unknown]
  - Aggression [Recovering/Resolving]

NARRATIVE: CASE EVENT DATE: 20170308
